FAERS Safety Report 19794275 (Version 1)
Quarter: 2021Q3

REPORT INFORMATION
  Report Type: Spontaneous
  Country: PT (occurrence: PT)
  Receive Date: 20210906
  Receipt Date: 20210906
  Transmission Date: 20211014
  Serious: Yes (Other)
  Sender: FDA-Public Use
  Company Number: PT-SAMSUNG BIOEPIS-SB-2021-20889

PATIENT
  Age: 49 Year
  Sex: Female

DRUGS (4)
  1. INFLIXIMAB [Suspect]
     Active Substance: INFLIXIMAB
     Indication: CROHN^S DISEASE
     Dosage: UNKNOWN
     Route: 065
  2. HYALURONIC ACID [Concomitant]
     Active Substance: HYALURONIC ACID
     Indication: PROPHYLAXIS URINARY TRACT INFECTION
     Dosage: UNKNOWN
     Route: 065
  3. VEDOLIZUMAB [Concomitant]
     Active Substance: VEDOLIZUMAB
     Indication: PRODUCT USED FOR UNKNOWN INDICATION
     Dosage: UNKNOWN
     Route: 065
     Dates: start: 2018
  4. NITROFURANTOIN. [Concomitant]
     Active Substance: NITROFURANTOIN
     Indication: PROPHYLAXIS URINARY TRACT INFECTION
     Dosage: UNKNOWN
     Route: 065

REACTIONS (6)
  - Intestinal obstruction [Unknown]
  - Crohn^s disease [Recovered/Resolved]
  - Metastatic cutaneous Crohn^s disease [Unknown]
  - Urinary tract infection [Recovered/Resolved]
  - Pyelonephritis [Unknown]
  - Loss of therapeutic response [Unknown]

NARRATIVE: CASE EVENT DATE: 2017
